FAERS Safety Report 13560327 (Version 1)
Quarter: 2017Q2

REPORT INFORMATION
  Report Type: Spontaneous
  Country: US (occurrence: US)
  Receive Date: 20170518
  Receipt Date: 20170518
  Transmission Date: 20170830
  Serious: No
  Sender: FDA-Public Use
  Company Number: US-PFIZER INC-2017215130

PATIENT
  Age: 67 Year
  Sex: Female

DRUGS (1)
  1. XELJANZ [Suspect]
     Active Substance: TOFACITINIB CITRATE
     Indication: RHEUMATOID ARTHRITIS
     Dosage: 5 MG, 2X/DAY
     Route: 048
     Dates: start: 201704, end: 2017

REACTIONS (7)
  - Cough [Unknown]
  - Fatigue [Unknown]
  - Weight decreased [Unknown]
  - Pain [Unknown]
  - Decreased appetite [Unknown]
  - Respiratory disorder [Unknown]
  - Rash pustular [Unknown]
